FAERS Safety Report 19697550 (Version 3)
Quarter: 2021Q3

REPORT INFORMATION
  Report Type: Spontaneous
  Country: NL (occurrence: NO)
  Receive Date: 20210813
  Receipt Date: 20210831
  Transmission Date: 20211014
  Serious: Yes (Life-Threatening)
  Sender: FDA-Public Use
  Company Number: NO-FRESENIUS KABI-FK202108097

PATIENT
  Age: 50 Year
  Sex: Female
  Weight: 68 kg

DRUGS (5)
  1. PHENYLPROPANOLAMINE HYDROCHLORIDE [Concomitant]
     Active Substance: PHENYLPROPANOLAMINE HYDROCHLORIDE
     Indication: NASAL CONGESTION
     Dosage: 1?2 TIMES DAILY AS NEEDED
     Route: 065
  2. EBASTINE [Concomitant]
     Active Substance: EBASTINE
     Indication: HYPERSENSITIVITY
     Dosage: 2 TIMES DAILY?ADDITIONAL INFORMATION ON DRUG (FREE TEXT):R06AX22 ? EBASTIN ? ONGOING TREATMENT
     Route: 065
  3. SODIUM CHLORIDE 0.9% SOLUTION FOR INFUSION [Suspect]
     Active Substance: SODIUM CHLORIDE
     Indication: WOUND TREATMENT
  4. DOXYCYCLINE. [Concomitant]
     Active Substance: DOXYCYCLINE
     Indication: POST PROCEDURAL INFLAMMATION
     Dosage: 1 TIME DAILY?ADDITIONAL INFORMATION ON DRUG (FREE TEXT):J01AA02 ? DOKSYSYKLIN ? ONGOING TREATMENT
     Route: 065
     Dates: start: 20210615
  5. SODIUM CHLORIDE 0.9% SOLUTION FOR INFUSION [Suspect]
     Active Substance: SODIUM CHLORIDE
     Indication: NASAL IRRIGATION
     Dosage: 1?1.5 LITER PER DAY.?DUPLICATE: THERAPY START DATE 17/06/2021.?STRENGTH: 9 MG/ML
     Route: 065
     Dates: start: 20210616

REACTIONS (19)
  - Muscle spasms [Recovered/Resolved]
  - Syncope [Recovered/Resolved]
  - Retching [Unknown]
  - Apnoea [Unknown]
  - Diarrhoea [Recovering/Resolving]
  - Pharyngeal swelling [Unknown]
  - Nasal crusting [Unknown]
  - Secretion discharge [Unknown]
  - Syncope [Recovered/Resolved with Sequelae]
  - Diarrhoea [Recovering/Resolving]
  - Hyperventilation [Unknown]
  - Head discomfort [Unknown]
  - Dyspnoea [Recovering/Resolving]
  - Dizziness [Recovered/Resolved]
  - Nausea [Not Recovered/Not Resolved]
  - Muscle spasms [Recovering/Resolving]
  - Vomiting [Not Recovered/Not Resolved]
  - Vasodilatation [Unknown]
  - Fatigue [Recovered/Resolved]

NARRATIVE: CASE EVENT DATE: 20210616
